FAERS Safety Report 10453218 (Version 2)
Quarter: 2014Q3

REPORT INFORMATION
  Report Type: Spontaneous
  Country: US (occurrence: US)
  Receive Date: 20140915
  Receipt Date: 20140915
  Transmission Date: 20150326
  Serious: Yes (Other)
  Sender: FDA-Public Use
  Company Number: US-ABBVIE-13P-163-1166202-00

PATIENT
  Sex: Female
  Weight: 38.59 kg

DRUGS (3)
  1. DEPAKOTE [Suspect]
     Active Substance: DIVALPROEX SODIUM
     Indication: HEAD INJURY
     Dosage: UNKNOWN
     Route: 048
     Dates: start: 2000
  2. DEPAKOTE [Suspect]
     Active Substance: DIVALPROEX SODIUM
     Indication: CONVULSION
     Dosage: 3 IN MORNING, 2 AFTERNOON, 3 IN EVENING
     Route: 048
  3. VIMPAT [Concomitant]
     Active Substance: LACOSAMIDE
     Indication: CONVULSION

REACTIONS (6)
  - Fall [Not Recovered/Not Resolved]
  - Gait disturbance [Not Recovered/Not Resolved]
  - Platelet count decreased [Not Recovered/Not Resolved]
  - Generalised tonic-clonic seizure [Not Recovered/Not Resolved]
  - Petit mal epilepsy [Not Recovered/Not Resolved]
  - Dizziness [Not Recovered/Not Resolved]

NARRATIVE: CASE EVENT DATE: 2013
